FAERS Safety Report 10766889 (Version 2)
Quarter: 2015Q2

REPORT INFORMATION
  Report Type: Spontaneous
  Country: US (occurrence: US)
  Receive Date: 20150205
  Receipt Date: 20150626
  Transmission Date: 20150821
  Serious: Yes (Hospitalization, Disabling, Other)
  Sender: FDA-Public Use
  Company Number: US-009507513-1203USA02333

PATIENT
  Sex: Female

DRUGS (3)
  1. BONIVA [Suspect]
     Active Substance: IBANDRONATE SODIUM
     Indication: OSTEOPENIA
     Dosage: 150 MG, QM
     Dates: start: 200607, end: 200806
  2. FOSAMAX [Suspect]
     Active Substance: ALENDRONATE SODIUM
     Indication: OSTEOPENIA
     Dosage: 70 MG, QW
     Route: 048
     Dates: start: 199904, end: 200801
  3. ALENDRONATE SODIUM. [Suspect]
     Active Substance: ALENDRONATE SODIUM
     Indication: OSTEOPENIA
     Dosage: 70 MG, UNK
     Dates: start: 20070621, end: 2010

REACTIONS (27)
  - Femur fracture [Recovering/Resolving]
  - Incision site haematoma [Unknown]
  - Cardiomegaly [Unknown]
  - Low turnover osteopathy [Unknown]
  - Dyspnoea exertional [Unknown]
  - Intramedullary rod insertion [Unknown]
  - Wrist fracture [Unknown]
  - Rotator cuff syndrome [Unknown]
  - Patella fracture [Unknown]
  - Dyslipidaemia [Unknown]
  - Leukocytosis [Unknown]
  - Rotator cuff repair [Unknown]
  - Anaemia postoperative [Unknown]
  - Nausea [Unknown]
  - Wrist fracture [Unknown]
  - Upper limb fracture [Unknown]
  - Osteoarthritis [Unknown]
  - Chest pain [Unknown]
  - Knee arthroplasty [Unknown]
  - Foot fracture [Unknown]
  - Adverse event [Unknown]
  - Wound dehiscence [Unknown]
  - Knee arthroplasty [Unknown]
  - Impaired healing [Unknown]
  - Gastrooesophageal reflux disease [Unknown]
  - Breast mass [Unknown]
  - Type 2 diabetes mellitus [Unknown]

NARRATIVE: CASE EVENT DATE: 2000
